FAERS Safety Report 8307345-3 (Version None)
Quarter: 2012Q2

REPORT INFORMATION
  Report Type: 
  Country: None (occurrence: None)
  Receive Date: 20120424
  Receipt Date: 20120416
  Transmission Date: 20120825
  Serious: Yes (Hospitalization)
  Sender: FDA-Public Use
  Company Number: US-BAYER-2011-070875

PATIENT
  Age: 28 Year
  Sex: Female
  Weight: 129 kg

DRUGS (5)
  1. YAZ [Suspect]
     Indication: CONTRACEPTION
     Dosage: UNK
     Dates: start: 20100401, end: 20100701
  2. SYMBICORT [Concomitant]
  3. NORCO [Concomitant]
  4. NSAID'S [Concomitant]
     Dosage: UNK UNK, PRN
  5. ALBUTEROL [Concomitant]
     Dosage: UNK UNK, PRN

REACTIONS (6)
  - ANHEDONIA [None]
  - PAIN [None]
  - PULMONARY EMBOLISM [None]
  - CHEST PAIN [None]
  - DYSPNOEA [None]
  - ANXIETY [None]
